FAERS Safety Report 18337393 (Version 3)
Quarter: 2020Q4

REPORT INFORMATION
  Report Type: Spontaneous
  Country: US (occurrence: US)
  Receive Date: 20201002
  Receipt Date: 20201118
  Transmission Date: 20210113
  Serious: Yes (Hospitalization, Other)
  Sender: FDA-Public Use
  Company Number: US-ASTRAZENECA-2020SF25127

PATIENT
  Age: 10417 Day
  Sex: Male
  Weight: 117.5 kg

DRUGS (72)
  1. HYDROCHLOROTHIAZIDE. [Concomitant]
     Active Substance: HYDROCHLOROTHIAZIDE
  2. PROMETHAZINE [Concomitant]
     Active Substance: PROMETHAZINE HYDROCHLORIDE
  3. VASCEPA [Concomitant]
     Active Substance: ICOSAPENT ETHYL
  4. BENZACLIN [Concomitant]
     Active Substance: BENZOYL PEROXIDE\CLINDAMYCIN PHOSPHATE
     Route: 065
  5. DIFLUCAN [Concomitant]
     Active Substance: FLUCONAZOLE
     Route: 065
     Dates: start: 20190318
  6. CHLORTHALIDONE. [Concomitant]
     Active Substance: CHLORTHALIDONE
  7. SUCCINYLCHOLINE [Concomitant]
     Active Substance: SUCCINYLCHOLINE
  8. NALOXONE [Concomitant]
     Active Substance: NALOXONE
     Dates: start: 20170810
  9. FARXIGA [Suspect]
     Active Substance: DAPAGLIFLOZIN PROPANEDIOL
     Indication: TYPE 2 DIABETES MELLITUS
     Route: 048
     Dates: start: 20160304, end: 201702
  10. ISOTRETINOIN. [Concomitant]
     Active Substance: ISOTRETINOIN
  11. LEVAQUIN [Concomitant]
     Active Substance: LEVOFLOXACIN
  12. FLOMAX [Concomitant]
     Active Substance: TAMSULOSIN HYDROCHLORIDE
  13. HYDRALAZINE [Concomitant]
     Active Substance: HYDRALAZINE HYDROCHLORIDE
  14. TIVICAY [Concomitant]
     Active Substance: DOLUTEGRAVIR SODIUM
  15. MIDAZOLAM. [Concomitant]
     Active Substance: MIDAZOLAM
  16. SUGAMMADEX [Concomitant]
     Active Substance: SUGAMMADEX
     Dates: start: 20170810
  17. KETOROLAC [Concomitant]
     Active Substance: KETOROLAC TROMETHAMINE
  18. MEROPENEM. [Concomitant]
     Active Substance: MEROPENEM
  19. BACTRIM [Concomitant]
     Active Substance: SULFAMETHOXAZOLE\TRIMETHOPRIM
     Route: 065
  20. FENTANYL. [Concomitant]
     Active Substance: FENTANYL
  21. FARXIGA [Suspect]
     Active Substance: DAPAGLIFLOZIN PROPANEDIOL
     Indication: TYPE 2 DIABETES MELLITUS
     Route: 048
     Dates: start: 20190911
  22. TRULICITY [Concomitant]
     Active Substance: DULAGLUTIDE
     Dates: start: 20200612
  23. AMLODIPINE [Concomitant]
     Active Substance: AMLODIPINE BESYLATE
  24. KAZANO [Concomitant]
     Active Substance: ALOGLIPTIN BENZOATE\METFORMIN HYDROCHLORIDE
     Route: 065
  25. OMEPRAZOLE. [Concomitant]
     Active Substance: OMEPRAZOLE
  26. LOSARTAN. [Concomitant]
     Active Substance: LOSARTAN
  27. ROCURONIUM [Concomitant]
     Active Substance: ROCURONIUM BROMIDE
  28. FARXIGA [Suspect]
     Active Substance: DAPAGLIFLOZIN PROPANEDIOL
     Indication: WEIGHT DECREASED
     Route: 048
     Dates: start: 20160304, end: 201702
  29. ASCORBIC ACID. [Concomitant]
     Active Substance: ASCORBIC ACID
  30. ICAR [Concomitant]
  31. HYDROMORPHONE [Concomitant]
     Active Substance: HYDROMORPHONE
  32. NALOXONE [Concomitant]
     Active Substance: NALOXONE
  33. ONDANSETRON [Concomitant]
     Active Substance: ONDANSETRON
  34. NORCO [Concomitant]
     Active Substance: ACETAMINOPHEN\HYDROCODONE BITARTRATE
  35. EXFORGE [Concomitant]
     Active Substance: AMLODIPINE BESYLATE\VALSARTAN
     Route: 065
  36. GLIPIZIDE. [Concomitant]
     Active Substance: GLIPIZIDE
     Route: 065
  37. CALCITRIOL. [Concomitant]
     Active Substance: CALCITRIOL
  38. BICALUTAMIDE. [Concomitant]
     Active Substance: BICALUTAMIDE
  39. FARXIGA [Suspect]
     Active Substance: DAPAGLIFLOZIN PROPANEDIOL
     Indication: WEIGHT DECREASED
     Route: 048
     Dates: start: 20190911
  40. FARXIGA [Suspect]
     Active Substance: DAPAGLIFLOZIN PROPANEDIOL
     Indication: TYPE 2 DIABETES MELLITUS
     Route: 048
     Dates: start: 20170204
  41. FARXIGA [Suspect]
     Active Substance: DAPAGLIFLOZIN PROPANEDIOL
     Indication: BLOOD PRESSURE DECREASED
     Route: 048
     Dates: start: 20170204
  42. FLEXERIL [Concomitant]
     Active Substance: CYCLOBENZAPRINE HYDROCHLORIDE
  43. POTASSIUM CHLORIDE. [Concomitant]
     Active Substance: POTASSIUM CHLORIDE
     Dates: start: 20190326
  44. AVELOX [Concomitant]
     Active Substance: MOXIFLOXACIN HYDROCHLORIDE
  45. MORPHINE [Concomitant]
     Active Substance: MORPHINE
  46. DEXTROSE. [Concomitant]
     Active Substance: DEXTROSE
  47. HUMULIN NOS [Concomitant]
     Active Substance: INSULIN HUMAN
  48. DIPHENHYDRAMINE. [Concomitant]
     Active Substance: DIPHENHYDRAMINE
  49. VITAMIN D3 [Concomitant]
     Active Substance: CHOLECALCIFEROL
  50. KETOCONAZOLE. [Concomitant]
     Active Substance: KETOCONAZOLE
     Route: 065
  51. VALSARTAN. [Concomitant]
     Active Substance: VALSARTAN
  52. RITONAVIR. [Concomitant]
     Active Substance: RITONAVIR
  53. SPIRONOLACTONE. [Concomitant]
     Active Substance: SPIRONOLACTONE
     Dates: start: 20200612
  54. PROPOFOL. [Concomitant]
     Active Substance: PROPOFOL
  55. FARXIGA [Suspect]
     Active Substance: DAPAGLIFLOZIN PROPANEDIOL
     Indication: BLOOD PRESSURE DECREASED
     Route: 048
     Dates: start: 20190911
  56. FARXIGA [Suspect]
     Active Substance: DAPAGLIFLOZIN PROPANEDIOL
     Indication: WEIGHT DECREASED
     Route: 048
     Dates: start: 20170204
  57. JANUMET [Concomitant]
     Active Substance: METFORMIN HYDROCHLORIDE\SITAGLIPTIN PHOSPHATE
     Dates: start: 20190318
  58. LIDOCAINE. [Concomitant]
     Active Substance: LIDOCAINE
  59. FINASTERIDE. [Concomitant]
     Active Substance: FINASTERIDE
  60. FERROUS SULFATE. [Concomitant]
     Active Substance: FERROUS SULFATE
  61. FUROSEMIDE. [Concomitant]
     Active Substance: FUROSEMIDE
     Dates: start: 20190326
  62. BUMETANIDE. [Concomitant]
     Active Substance: BUMETANIDE
  63. DARUNAVIR [Concomitant]
     Active Substance: DARUNAVIR
     Dates: start: 20200612
  64. IBUPROFEN. [Concomitant]
     Active Substance: IBUPROFEN
  65. MUPIROCIN. [Concomitant]
     Active Substance: MUPIROCIN
  66. PREDNISONE. [Concomitant]
     Active Substance: PREDNISONE
     Dates: start: 20170811
  67. FARXIGA [Suspect]
     Active Substance: DAPAGLIFLOZIN PROPANEDIOL
     Indication: BLOOD PRESSURE DECREASED
     Route: 048
     Dates: start: 20160304, end: 201702
  68. FLAGYL [Concomitant]
     Active Substance: METRONIDAZOLE\METRONIDAZOLE HYDROCHLORIDE
     Dates: start: 20170213
  69. DOCUSATE [Concomitant]
     Active Substance: DOCUSATE
  70. ACETAMINOPHEN. [Concomitant]
     Active Substance: ACETAMINOPHEN
  71. TRETINOIN. [Concomitant]
     Active Substance: TRETINOIN
     Route: 065
  72. COREG [Concomitant]
     Active Substance: CARVEDILOL

REACTIONS (13)
  - Fournier^s gangrene [Unknown]
  - Sepsis [Unknown]
  - Nephrogenic anaemia [Unknown]
  - Hyperparathyroidism secondary [Unknown]
  - Chronic kidney disease [Unknown]
  - Urinary tract infection [Unknown]
  - Cellulitis of male external genital organ [Unknown]
  - End stage renal disease [Unknown]
  - Abscess limb [Unknown]
  - Acute kidney injury [Unknown]
  - Hyperkalaemia [Unknown]
  - Scrotal abscess [Unknown]
  - Orchitis [Unknown]

NARRATIVE: CASE EVENT DATE: 20170204
